FAERS Safety Report 25900120 (Version 1)
Quarter: 2025Q4

REPORT INFORMATION
  Report Type: Spontaneous
  Country: GB (occurrence: GB)
  Receive Date: 20251009
  Receipt Date: 20251009
  Transmission Date: 20260117
  Serious: Yes (Disabling, Other)
  Sender: ACCORD
  Company Number: None

PATIENT
  Age: 13 Year
  Sex: Female
  Weight: 38 kg

DRUGS (2)
  1. SERTRALINE [Suspect]
     Active Substance: SERTRALINE HYDROCHLORIDE
     Indication: Anxiety disorder
     Dosage: CURRENTLY 150 MG EVERY MORNING
     Dates: start: 20240720
  2. OLANZAPINE [Concomitant]
     Active Substance: OLANZAPINE
     Indication: Adverse drug reaction
     Dates: start: 20250614

REACTIONS (2)
  - Medication error [Unknown]
  - Tic [Not Recovered/Not Resolved]

NARRATIVE: CASE EVENT DATE: 20241001
